FAERS Safety Report 11816201 (Version 2)
Quarter: 2016Q1

REPORT INFORMATION
  Report Type: Report from Study
  Country: US (occurrence: US)
  Receive Date: 20151209
  Receipt Date: 20160105
  Transmission Date: 20160525
  Serious: Yes (Hospitalization)
  Sender: FDA-Public Use
  Company Number: US-GILEAD-2015-0186385

PATIENT
  Age: 51 Year
  Sex: Female

DRUGS (18)
  1. ZOFRAN [Concomitant]
     Active Substance: ONDANSETRON HYDROCHLORIDE
  2. OSCAL [Concomitant]
     Active Substance: CALCIUM CARBONATE
  3. ATIVAN [Concomitant]
     Active Substance: LORAZEPAM
  4. ZYLOPRIM [Concomitant]
     Active Substance: ALLOPURINOL
  5. TYLENOL [Concomitant]
     Active Substance: ACETAMINOPHEN
  6. MYCOSTATIN [Concomitant]
     Active Substance: NYSTATIN
  7. K-PHOS [Concomitant]
     Active Substance: POTASSIUM PHOSPHATE, MONOBASIC
  8. ANUCORT-HC [Concomitant]
     Active Substance: HYDROCORTISONE ACETATE
  9. IDELALISIB [Suspect]
     Active Substance: IDELALISIB
     Dosage: 150 MG, BID
     Route: 048
     Dates: start: 20151022, end: 20151118
  10. PROVENTIL [Concomitant]
     Active Substance: ALBUTEROL
  11. MAGNESIUM OXIDE. [Concomitant]
     Active Substance: MAGNESIUM OXIDE
  12. K-TAB [Concomitant]
     Active Substance: POTASSIUM CHLORIDE
  13. IDELALISIB [Suspect]
     Active Substance: IDELALISIB
     Indication: CHRONIC LYMPHOCYTIC LEUKAEMIA
     Dosage: 150 MG, BID
     Route: 048
     Dates: start: 20150109, end: 20150930
  14. COMPAZINE [Concomitant]
     Active Substance: PROCHLORPERAZINE MALEATE
  15. ZOVIRAX [Concomitant]
     Active Substance: ACYCLOVIR
  16. PROTONIX [Concomitant]
     Active Substance: PANTOPRAZOLE SODIUM
  17. FLONASE [Concomitant]
     Active Substance: FLUTICASONE PROPIONATE
  18. CALCITRATE [Concomitant]
     Active Substance: CALCIUM CITRATE

REACTIONS (1)
  - Hypercalcaemia [Recovered/Resolved]

NARRATIVE: CASE EVENT DATE: 20151121
